FAERS Safety Report 19823051 (Version 5)
Quarter: 2022Q2

REPORT INFORMATION
  Report Type: Spontaneous
  Country: KE (occurrence: KE)
  Receive Date: 20210913
  Receipt Date: 20220524
  Transmission Date: 20220721
  Serious: Yes (Death)
  Sender: FDA-Public Use
  Company Number: KE-PFIZER INC-202101150851

PATIENT
  Age: 8 Year
  Sex: Male
  Weight: 34.2 kg

DRUGS (22)
  1. NEURONTIN [Suspect]
     Active Substance: GABAPENTIN
     Indication: Analgesic therapy
     Dosage: 600 MG
     Dates: start: 20210224, end: 20210224
  2. NEURONTIN [Suspect]
     Active Substance: GABAPENTIN
     Dosage: 300 MG
     Dates: start: 20210225, end: 20210225
  3. MORPHINE [Suspect]
     Active Substance: MORPHINE
     Indication: Analgesic therapy
     Dosage: 17.5 ML/HR FOR ONE HOUR
     Route: 030
     Dates: start: 20210223
  4. MORPHINE [Suspect]
     Active Substance: MORPHINE
     Dosage: 3ML/HR FOR BETWEEN 5AM TO 3PM
     Route: 030
     Dates: start: 20210224
  5. CEFTRIAXONE SODIUM [Concomitant]
     Active Substance: CEFTRIAXONE SODIUM
     Dosage: 500 MG
     Route: 042
  6. LASIX [Concomitant]
     Active Substance: FUROSEMIDE
     Dosage: 40 MG
     Dates: start: 20210224, end: 20210224
  7. LASIX [Concomitant]
     Active Substance: FUROSEMIDE
     Dosage: 20 MG
     Dates: start: 20210225, end: 20210225
  8. LASIX [Concomitant]
     Active Substance: FUROSEMIDE
     Dosage: 150 MG
     Dates: start: 20210228, end: 20210228
  9. DICLOFENAC [Concomitant]
     Active Substance: DICLOFENAC
     Dosage: 25 MG
     Dates: start: 20210224, end: 20210228
  10. NALOXONE [Concomitant]
     Active Substance: NALOXONE
     Dosage: 1.2 MG
     Dates: start: 20210225, end: 20210225
  11. NALOXONE [Concomitant]
     Active Substance: NALOXONE
     Dosage: 0.4 MG
     Dates: start: 20210226, end: 20210226
  12. NALOXONE [Concomitant]
     Active Substance: NALOXONE
     Dosage: 0.4 MG
     Dates: start: 20210228, end: 20210228
  13. CEFTRIAXONE [Concomitant]
     Active Substance: CEFTRIAXONE
     Dosage: 3500 MG
     Dates: start: 20210224, end: 20210224
  14. CEFTRIAXONE [Concomitant]
     Active Substance: CEFTRIAXONE
     Dosage: 1500 MG
     Dates: start: 20210225, end: 20210227
  15. TORADOL [Concomitant]
     Active Substance: KETOROLAC TROMETHAMINE
     Dosage: 30 MG
     Dates: start: 20210224, end: 20210224
  16. PANTOPRAZOLE [Concomitant]
     Active Substance: PANTOPRAZOLE
     Dosage: 40 MG
     Dates: start: 20210225, end: 20210227
  17. DEXAMETHASONE [Concomitant]
     Active Substance: DEXAMETHASONE
     Dosage: 4 MG
     Dates: start: 20210225, end: 20210226
  18. ZITHROMAX [Concomitant]
     Active Substance: AZITHROMYCIN DIHYDRATE
     Dosage: 500 MG
     Dates: start: 20210225, end: 20210228
  19. ACETAMINOPHEN [Concomitant]
     Active Substance: ACETAMINOPHEN
     Dosage: 500 MG
     Dates: start: 20210224, end: 20210224
  20. ACETAMINOPHEN [Concomitant]
     Active Substance: ACETAMINOPHEN
     Dosage: 500 MG
     Dates: start: 20210226, end: 20210226
  21. PENICILLIN [Concomitant]
     Active Substance: PENICILLIN
     Dosage: 250 MG
     Dates: start: 20210224, end: 20210228
  22. HYDREA [Concomitant]
     Active Substance: HYDROXYUREA
     Dosage: 500 MG
     Dates: start: 20210224, end: 20210228

REACTIONS (8)
  - Cardiac arrest [Fatal]
  - Renal failure [Fatal]
  - Respiratory rate decreased [Fatal]
  - Somnolence [Fatal]
  - Headache [Fatal]
  - Confusional state [Fatal]
  - Dizziness [Fatal]
  - Off label use [Unknown]
